FAERS Safety Report 18591251 (Version 1)
Quarter: 2020Q4

REPORT INFORMATION
  Report Type: Report from Study
  Country: AR (occurrence: AR)
  Receive Date: 20201208
  Receipt Date: 20201208
  Transmission Date: 20210114
  Serious: Yes (Hospitalization)
  Sender: FDA-Public Use
  Company Number: AR-BAYER-2020-262415

PATIENT
  Sex: Female

DRUGS (1)
  1. NIFURTIMOX 120 MG [Suspect]
     Active Substance: NIFURTIMOX

REACTIONS (3)
  - Dysarthria [Recovered/Resolved]
  - Panic attack [Recovered/Resolved]
  - Tremor [Recovered/Resolved]
